FAERS Safety Report 6638945-4 (Version None)
Quarter: 2010Q1

REPORT INFORMATION
  Report Type: 
  Country: None (occurrence: None)
  Receive Date: 20100317
  Receipt Date: 20100313
  Transmission Date: 20100710
  Serious: Yes (Death, Hospitalization, Other)
  Sender: FDA-Public Use
  Company Number: PHHY2010BR15366

PATIENT
  Age: 73 Year
  Sex: Female
  Weight: 36 kg

DRUGS (1)
  1. DIOVAN [Suspect]
     Indication: HYPERTENSION
     Dosage: 1 TABLET (160/5/12.5) MG DAILY
     Route: 048
     Dates: start: 20090924

REACTIONS (5)
  - FALL [None]
  - FEMUR FRACTURE [None]
  - HYPERTENSION [None]
  - PAIN [None]
  - SHOCK [None]
